FAERS Safety Report 16280157 (Version 1)
Quarter: 2019Q2

REPORT INFORMATION
  Report Type: Spontaneous
  Country: FR (occurrence: FR)
  Receive Date: 20190507
  Receipt Date: 20190507
  Transmission Date: 20190711
  Serious: Yes (Hospitalization)
  Sender: FDA-Public Use
  Company Number: FR-SA-2019SA119695

PATIENT
  Age: 18 Year
  Sex: Male

DRUGS (1)
  1. AUBAGIO [Suspect]
     Active Substance: TERIFLUNOMIDE
     Indication: MULTIPLE SCLEROSIS
     Route: 048
     Dates: start: 201702, end: 201809

REACTIONS (2)
  - Somnolence [Recovered/Resolved with Sequelae]
  - Hypersomnia [Recovered/Resolved with Sequelae]

NARRATIVE: CASE EVENT DATE: 201703
